FAERS Safety Report 9162644 (Version 1)
Quarter: 2013Q1

REPORT INFORMATION
  Report Type: Spontaneous
  Country: IT (occurrence: IT)
  Receive Date: 20130314
  Receipt Date: 20130314
  Transmission Date: 20140127
  Serious: Yes (Hospitalization)
  Sender: FDA-Public Use
  Company Number: IT-BRISTOL-MYERS SQUIBB COMPANY-17466459

PATIENT
  Age: 81 Year
  Sex: Female

DRUGS (3)
  1. COUMADIN TABS 5 MG [Suspect]
     Route: 048
     Dates: start: 20120101, end: 20130221
  2. EUTIROX [Concomitant]
     Dosage: TAB
  3. ISOPTIN [Concomitant]
     Dosage: TAB
     Route: 048

REACTIONS (2)
  - Epistaxis [Unknown]
  - Presyncope [Unknown]
